FAERS Safety Report 13946119 (Version 1)
Quarter: 2017Q3

REPORT INFORMATION
  Report Type: Spontaneous
  Country: PL (occurrence: PL)
  Receive Date: 20170907
  Receipt Date: 20170907
  Transmission Date: 20171128
  Serious: Yes (Life-Threatening, Other)
  Sender: FDA-Public Use
  Company Number: PL-ACCORD-056889

PATIENT
  Age: 63 Year
  Sex: Female
  Weight: 67 kg

DRUGS (2)
  1. ETOPOSIDE. [Suspect]
     Active Substance: ETOPOSIDE
     Indication: LUNG CARCINOMA CELL TYPE UNSPECIFIED STAGE I
     Route: 042
     Dates: start: 20140415, end: 20140612
  2. CISPLATIN. [Suspect]
     Active Substance: CISPLATIN
     Indication: LUNG CARCINOMA CELL TYPE UNSPECIFIED STAGE I
     Route: 042
     Dates: start: 20140415, end: 20140612

REACTIONS (2)
  - Neutropenia [Recovering/Resolving]
  - Dermatitis [Recovering/Resolving]

NARRATIVE: CASE EVENT DATE: 20140513
